FAERS Safety Report 12861103 (Version 1)
Quarter: 2016Q4

REPORT INFORMATION
  Report Type: Spontaneous
  Country: US (occurrence: US)
  Receive Date: 20161019
  Receipt Date: 20161019
  Transmission Date: 20170207
  Serious: Yes (Hospitalization)
  Sender: FDA-Public Use
  Company Number: US-BEH-2016061404

PATIENT
  Sex: Female
  Weight: 81.65 kg

DRUGS (9)
  1. LEXAPRO [Concomitant]
     Active Substance: ESCITALOPRAM OXALATE
  2. FENOFIBRATE. [Concomitant]
     Active Substance: FENOFIBRATE
  3. DOXYCYCLINE. [Concomitant]
     Active Substance: DOXYCYCLINE
  4. PREDNISONE. [Concomitant]
     Active Substance: PREDNISONE
  5. ZANTAC [Concomitant]
     Active Substance: RANITIDINE HYDROCHLORIDE
  6. SYNTHROID [Concomitant]
     Active Substance: LEVOTHYROXINE SODIUM
  7. BENADRYL [Concomitant]
     Active Substance: DIPHENHYDRAMINE HYDROCHLORIDE
  8. BERINERT [Suspect]
     Active Substance: HUMAN C1-ESTERASE INHIBITOR
     Indication: IDIOPATHIC URTICARIA
     Dosage: AS DIRECTED
     Route: 042
     Dates: start: 20140214
  9. BERINERT [Suspect]
     Active Substance: HUMAN C1-ESTERASE INHIBITOR
     Indication: HEREDITARY ANGIOEDEMA

REACTIONS (1)
  - Hereditary angioedema [Unknown]
